FAERS Safety Report 9442866 (Version 1)
Quarter: 2013Q3

REPORT INFORMATION
  Report Type: Spontaneous
  Country: US (occurrence: US)
  Receive Date: 20130806
  Receipt Date: 20130806
  Transmission Date: 20140515
  Serious: No
  Sender: FDA-Public Use
  Company Number: US-009507513-1308USA002650

PATIENT
  Sex: Female

DRUGS (1)
  1. DR. SCHOLL^S INGROWN TOENAIL PAIN RELIEVER [Suspect]
     Indication: ONYCHALGIA
     Dosage: UNK, UNKNOWN
     Route: 061
     Dates: start: 2013

REACTIONS (1)
  - Drug ineffective [Unknown]
